FAERS Safety Report 7669260-8 (Version None)
Quarter: 2011Q3

REPORT INFORMATION
  Report Type: 
  Country: None (occurrence: None)
  Receive Date: 20110808
  Receipt Date: 20110801
  Transmission Date: 20111222
  Serious: Yes (Life-Threatening)
  Sender: FDA-Public Use
  Company Number: PHHY2011DE63504

PATIENT
  Sex: Female
  Weight: 99 kg

DRUGS (8)
  1. TORSEMIDE [Concomitant]
     Dosage: 1 DF, QD
     Dates: start: 20040101, end: 20110630
  2. RASILEZ [Suspect]
     Indication: RENAL FAILURE
     Dosage: 1 DF, QD
     Dates: start: 20080101, end: 20110630
  3. PANTOPRAZOLE [Concomitant]
     Dosage: 1 DF, QD
     Dates: start: 20050101, end: 20110630
  4. AMLO [Concomitant]
     Dosage: 0.5 DF, QD
     Dates: end: 20110630
  5. METFORMIN HCL [Concomitant]
     Dosage: 0.5 DF, QD
     Dates: start: 20050101, end: 20110730
  6. BEZAFIBRAT [Concomitant]
     Dosage: 1 DF, QD
     Dates: start: 20040101, end: 20110630
  7. LOSARTAN PLUS [Concomitant]
     Dosage: 1 DF, QD
     Dates: start: 20110228, end: 20110630
  8. MARCUMAR [Concomitant]
     Dosage: UNK UKN, UNK

REACTIONS (1)
  - BLOOD CREATININE INCREASED [None]
